FAERS Safety Report 7281616-4 (Version None)
Quarter: 2011Q1

REPORT INFORMATION
  Report Type: 
  Country: None (occurrence: None)
  Receive Date: 20110208
  Receipt Date: 20110203
  Transmission Date: 20110831
  Serious: Yes (Death)
  Sender: FDA-Public Use
  Company Number: PHHY2011US00557

PATIENT
  Sex: Female

DRUGS (5)
  1. DIOVAN [Suspect]
     Indication: CORONARY ARTERY DISEASE
  2. DIOVAN [Suspect]
     Indication: HYPERTENSION
     Dosage: 160 MG, DAILY
     Route: 048
     Dates: start: 20080521
  3. SODIUM [Concomitant]
  4. ANTIHYPERTENSIVE DRUGS [Concomitant]
  5. PAIN PATCH [Concomitant]
     Dosage: UNK

REACTIONS (13)
  - DEPRESSION [None]
  - BACILLUS TEST POSITIVE [None]
  - MYALGIA [None]
  - FAILURE TO THRIVE [None]
  - HYPOPHAGIA [None]
  - BONE PAIN [None]
  - FATIGUE [None]
  - VITAMIN D DEFICIENCY [None]
  - SPINAL COLUMN STENOSIS [None]
  - PAIN [None]
  - DECREASED APPETITE [None]
  - CORONARY ARTERY DISEASE [None]
  - HYPERTENSION [None]
